FAERS Safety Report 17115764 (Version 1)
Quarter: 2019Q4

REPORT INFORMATION
  Report Type: Spontaneous
  Country: US (occurrence: US)
  Receive Date: 20191205
  Receipt Date: 20191205
  Transmission Date: 20200122
  Serious: Yes (Death, Hospitalization, Other)
  Sender: FDA-Public Use
  Company Number: US-SA-2019SA277542

PATIENT
  Age: 76 Year
  Sex: Female

DRUGS (1)
  1. ENOXAPARIN SODIUM. [Suspect]
     Active Substance: ENOXAPARIN SODIUM
     Indication: PULMONARY EMBOLISM
     Dosage: 1 MG/KG, Q12H; 5 DOSES
     Route: 058

REACTIONS (3)
  - Shock haemorrhagic [Fatal]
  - Blood pressure decreased [Fatal]
  - Spontaneous haematoma [Fatal]
